FAERS Safety Report 20584572 (Version 1)
Quarter: 2022Q1

REPORT INFORMATION
  Report Type: Spontaneous
  Country: RO (occurrence: RO)
  Receive Date: 20220311
  Receipt Date: 20220311
  Transmission Date: 20220423
  Serious: Yes (Hospitalization)
  Sender: FDA-Public Use
  Company Number: RO-GE HEALTHCARE-2022CSU001530

PATIENT
  Age: 59 Year
  Sex: Female

DRUGS (3)
  1. OMNIPAQUE [Suspect]
     Active Substance: IOHEXOL
     Indication: Imaging procedure
     Dosage: 90 ML, SINGLE
     Route: 042
     Dates: start: 20220210, end: 20220210
  2. OMNIPAQUE [Suspect]
     Active Substance: IOHEXOL
     Indication: Endometrial neoplasm
  3. OMNIPAQUE [Suspect]
     Active Substance: IOHEXOL
     Indication: Colon neoplasm

REACTIONS (5)
  - Thirst [Unknown]
  - Restlessness [Unknown]
  - Blood pressure decreased [Unknown]
  - Nausea [Unknown]
  - Chest pain [Unknown]

NARRATIVE: CASE EVENT DATE: 20220210
